FAERS Safety Report 8972386 (Version 2)
Quarter: 2013Q1

REPORT INFORMATION
  Report Type: Report from Study
  Country: US (occurrence: US)
  Receive Date: 20121218
  Receipt Date: 20130124
  Transmission Date: 20140127
  Serious: Yes (Other)
  Sender: FDA-Public Use
  Company Number: US-ROCHE-1167107

PATIENT
  Sex: Female

DRUGS (6)
  1. PEGASYS [Suspect]
     Indication: CHRONIC HEPATITIS C
     Route: 065
     Dates: start: 20121127
  2. RIBASPHERE [Suspect]
     Indication: CHRONIC HEPATITIS C
     Dosage: DIVIDED DOSES
     Route: 065
     Dates: start: 20121127
  3. TELAPREVIR [Suspect]
     Indication: CHRONIC HEPATITIS C
     Dosage: 2 TABLETS
     Route: 065
  4. WELLBUTRIN [Concomitant]
  5. RITALIN [Concomitant]
  6. XANAX [Concomitant]

REACTIONS (6)
  - Haemorrhoids [Unknown]
  - Diarrhoea [Unknown]
  - Back pain [Recovered/Resolved]
  - Injection site rash [Unknown]
  - Injection site mass [Unknown]
  - Injection site pruritus [Unknown]
